FAERS Safety Report 12782198 (Version 4)
Quarter: 2017Q1

REPORT INFORMATION
  Report Type: Report from Study
  Country: JP (occurrence: JP)
  Receive Date: 20160927
  Receipt Date: 20170124
  Transmission Date: 20170428
  Serious: Yes (Death, Life-Threatening, Hospitalization)
  Sender: FDA-Public Use
  Company Number: JP-ACTELION-A-CH2016-142834

PATIENT
  Age: 73 Year
  Sex: Male

DRUGS (9)
  1. SELBEX [Concomitant]
     Active Substance: TEPRENONE
  2. ROHYPNOL [Concomitant]
     Active Substance: FLUNITRAZEPAM
  3. FEBURIC [Concomitant]
     Active Substance: FEBUXOSTAT
  4. NORVASC [Concomitant]
     Active Substance: AMLODIPINE BESYLATE
  5. LENDORMIN [Concomitant]
     Active Substance: BROTIZOLAM
  6. ARTIST [Concomitant]
     Active Substance: CARVEDILOL
  7. PRORNER [Concomitant]
     Active Substance: BERAPROST SODIUM
  8. AZILVA [Concomitant]
     Active Substance: AZILSARTAN KAMEDOXOMIL
  9. OPSUMIT [Suspect]
     Active Substance: MACITENTAN
     Indication: PULMONARY HYPERTENSION
     Dosage: 10 MG, OD
     Route: 048
     Dates: start: 20160720, end: 20160825

REACTIONS (5)
  - Bile duct stone [Not Recovered/Not Resolved]
  - Multiple organ dysfunction syndrome [Fatal]
  - Pancreatitis acute [Fatal]
  - Choledocholithotomy [Unknown]
  - General physical condition abnormal [Fatal]

NARRATIVE: CASE EVENT DATE: 201608
